FAERS Safety Report 5877925-3 (Version None)
Quarter: 2008Q3

REPORT INFORMATION
  Report Type: 
  Country: None (occurrence: None)
  Receive Date: 20080911
  Receipt Date: 20080904
  Transmission Date: 20090109
  Serious: Yes (Other)
  Sender: FDA-Public Use
  Company Number: B0513081A

PATIENT
  Age: 54 Year
  Sex: Female

DRUGS (5)
  1. AMOXICILLIN + CLAVULANATE POTASSIUM [Suspect]
     Dosage: 625MG THREE TIMES PER DAY
     Route: 048
     Dates: start: 20080114
  2. AMOXICILLIN [Suspect]
     Route: 065
     Dates: start: 20080101
  3. PREDNISOLONE [Concomitant]
     Indication: CHRONIC OBSTRUCTIVE PULMONARY DISEASE
     Route: 065
  4. ALBUTEROL SPIROS [Concomitant]
     Indication: CHRONIC OBSTRUCTIVE PULMONARY DISEASE
     Route: 065
  5. FLIXOTIDE [Concomitant]
     Indication: CHRONIC OBSTRUCTIVE PULMONARY DISEASE
     Route: 065

REACTIONS (11)
  - ABDOMINAL PAIN [None]
  - ABDOMINAL PAIN UPPER [None]
  - ALANINE AMINOTRANSFERASE INCREASED [None]
  - CHOLELITHIASIS [None]
  - CHROMATURIA [None]
  - DRUG INEFFECTIVE [None]
  - FAECES PALE [None]
  - JAUNDICE CHOLESTATIC [None]
  - NAUSEA [None]
  - PAIN [None]
  - VOMITING [None]
